FAERS Safety Report 10639138 (Version 1)
Quarter: 2014Q4

REPORT INFORMATION
  Report Type: Spontaneous
  Country: US (occurrence: US)
  Receive Date: 20141208
  Receipt Date: 20141208
  Transmission Date: 20150529
  Serious: No
  Sender: FDA-Public Use
  Company Number: US-BAUSCH-SYM-2014-18215

PATIENT
  Sex: Male

DRUGS (1)
  1. CARAC [Suspect]
     Active Substance: FLUOROURACIL
     Indication: ACTINIC KERATOSIS
     Route: 061

REACTIONS (5)
  - Scab [Recovered/Resolved]
  - Chest discomfort [Recovered/Resolved]
  - Erythema [Not Recovered/Not Resolved]
  - Flushing [Unknown]
  - Inappropriate schedule of drug administration [Unknown]
